FAERS Safety Report 9192072 (Version 1)
Quarter: 2013Q1

REPORT INFORMATION
  Report Type: Spontaneous
  Country: CN (occurrence: None)
  Receive Date: 20130325
  Receipt Date: 20130325
  Transmission Date: 20140127
  Serious: Yes (Hospitalization, Other)
  Sender: FDA-Public Use
  Company Number: 2013P1003319

PATIENT
  Age: 23 Year
  Sex: Male
  Weight: 58 kg

DRUGS (1)
  1. CEFTRIAXONE [Suspect]
     Route: 042

REACTIONS (6)
  - Anuria [None]
  - Abdominal pain [None]
  - Nephrolithiasis [None]
  - Renal colic [None]
  - Renal injury [None]
  - Hydronephrosis [None]
